FAERS Safety Report 19437074 (Version 1)
Quarter: 2021Q2

REPORT INFORMATION
  Report Type: Spontaneous
  Country: CN (occurrence: CN)
  Receive Date: 20210618
  Receipt Date: 20210618
  Transmission Date: 20210717
  Serious: Yes (Other)
  Sender: FDA-Public Use
  Company Number: CN-JNJFOC-20210637444

PATIENT
  Age: 72 Year
  Sex: Male

DRUGS (4)
  1. SODIUM CHLORIDE. [Concomitant]
     Active Substance: SODIUM CHLORIDE
     Indication: VEHICLE SOLUTION USE
     Dosage: 100 ML, BID
     Route: 041
     Dates: start: 20210610, end: 20210610
  2. XARELTO [Suspect]
     Active Substance: RIVAROXABAN
     Indication: THROMBOSIS PROPHYLAXIS
     Dosage: 10 MG, QD
     Route: 048
     Dates: start: 20210608, end: 20210610
  3. AZTREONAM. [Suspect]
     Active Substance: AZTREONAM
     Indication: RESPIRATORY TRACT INFECTION
  4. AZTREONAM. [Suspect]
     Active Substance: AZTREONAM
     Indication: BACTERIAL INFECTION
     Dosage: 1 G, BID
     Route: 041
     Dates: start: 20210610, end: 20210610

REACTIONS (2)
  - Urticaria [Recovered/Resolved]
  - Pruritus [Recovering/Resolving]

NARRATIVE: CASE EVENT DATE: 20210610
